FAERS Safety Report 7525346-X (Version None)
Quarter: 2011Q2

REPORT INFORMATION
  Report Type: 
  Country: None (occurrence: None)
  Receive Date: 20110526
  Receipt Date: 20110428
  Transmission Date: 20111010
  Serious: Yes (Death)
  Sender: FDA-Public Use
  Company Number: 1000019331

PATIENT
  Age: 66 Year
  Sex: Male

DRUGS (2)
  1. CELEXA [Suspect]
     Indication: DEPRESSION
     Dosage: 10 MG (10 MG,1 IN 1 D),ORAL
     Route: 048
     Dates: start: 20100101, end: 20100101
  2. STEMETIL (PROCHLOROPERAZINE) (PROCHLOROPERAZINE) [Concomitant]

REACTIONS (2)
  - EMOTIONAL DISORDER [None]
  - COMPLETED SUICIDE [None]
